FAERS Safety Report 15622168 (Version 2)
Quarter: 2019Q1

REPORT INFORMATION
  Report Type: Spontaneous
  Country: JP (occurrence: JP)
  Receive Date: 20181115
  Receipt Date: 20190206
  Transmission Date: 20190417
  Serious: Yes (Other)
  Sender: FDA-Public Use
  Company Number: JP-ASTRAZENECA-2018SF49835

PATIENT
  Age: 85 Year
  Sex: Female

DRUGS (7)
  1. TRADITIONAL CHINESE MEDICINE NOS [Suspect]
     Active Substance: HERBALS
     Route: 048
     Dates: start: 20180609
  2. TAKEPRON [Concomitant]
     Active Substance: LANSOPRAZOLE
     Route: 065
     Dates: start: 20090521
  3. ONGLYZA [Suspect]
     Active Substance: SAXAGLIPTIN HYDROCHLORIDE
     Indication: TYPE 2 DIABETES MELLITUS
     Route: 048
     Dates: start: 20180609, end: 20181029
  4. BEZATOL [Concomitant]
     Active Substance: BEZAFIBRATE
     Route: 065
     Dates: start: 20180804
  5. REZALTAS [Concomitant]
     Active Substance: AZELNIDIPINE\OLMESARTAN MEDOXOMIL
     Route: 065
     Dates: start: 20101221
  6. URSODEOXYCHOLIC ACID [Concomitant]
     Active Substance: URSODIOL
     Route: 065
     Dates: start: 20110425
  7. BONVIVA [Concomitant]
     Active Substance: IBANDRONATE SODIUM
     Route: 065
     Dates: start: 20150623

REACTIONS (1)
  - Interstitial lung disease [Not Recovered/Not Resolved]

NARRATIVE: CASE EVENT DATE: 20181029
